FAERS Safety Report 11364129 (Version 1)
Quarter: 2015Q3

REPORT INFORMATION
  Report Type: Spontaneous
  Country: US (occurrence: None)
  Receive Date: 20150810
  Receipt Date: 20150810
  Transmission Date: 20151125
  Serious: No
  Sender: FDA-Public Use
  Company Number: None

PATIENT
  Age: 25 Year
  Sex: Female
  Weight: 49.9 kg

DRUGS (1)
  1. NIX [Suspect]
     Active Substance: PERMETHRIN

REACTIONS (3)
  - Hangover [None]
  - Headache [None]
  - Nausea [None]

NARRATIVE: CASE EVENT DATE: 20150807
